FAERS Safety Report 25431260 (Version 4)
Quarter: 2025Q4

REPORT INFORMATION
  Report Type: Spontaneous
  Country: GB (occurrence: GB)
  Receive Date: 20250613
  Receipt Date: 20251104
  Transmission Date: 20260118
  Serious: Yes (Hospitalization, Other)
  Sender: NOVARTIS
  Company Number: GB-002147023-NVSC2025GB093945

PATIENT
  Age: 39 Year
  Sex: Female

DRUGS (1)
  1. KESIMPTA [Suspect]
     Active Substance: OFATUMUMAB
     Indication: Relapsing-remitting multiple sclerosis
     Dosage: 20 MG
     Route: 058
     Dates: start: 20241014

REACTIONS (5)
  - Agranulocytosis [Recovered/Resolved]
  - Infection [Unknown]
  - SARS-CoV-2 test positive [Unknown]
  - Tonsillitis [Unknown]
  - Sepsis [Unknown]

NARRATIVE: CASE EVENT DATE: 20250505
